FAERS Safety Report 25086515 (Version 1)
Quarter: 2025Q1

REPORT INFORMATION
  Report Type: Spontaneous
  Country: US (occurrence: US)
  Receive Date: 20250317
  Receipt Date: 20250317
  Transmission Date: 20250408
  Serious: Yes (Other)
  Sender: BRISTOL-MYERS SQUIBB COMPANY
  Company Number: US-BRISTOL-MYERS SQUIBB COMPANY-2025-034998

PATIENT
  Age: 83 Year
  Sex: Female
  Weight: 58.51 kg

DRUGS (2)
  1. BREYANZI [Suspect]
     Active Substance: LISOCABTAGENE MARALEUCEL
     Indication: Diffuse large B-cell lymphoma
     Route: 042
     Dates: start: 20240109, end: 20240109
  2. BENDAMUSTINE [Concomitant]
     Active Substance: BENDAMUSTINE
     Indication: Product used for unknown indication
     Dates: start: 20240103, end: 20240104

REACTIONS (1)
  - Chronic myelomonocytic leukaemia [Unknown]

NARRATIVE: CASE EVENT DATE: 20240215
